FAERS Safety Report 9570415 (Version 1)
Quarter: 2013Q4

REPORT INFORMATION
  Report Type: Spontaneous
  Country: US (occurrence: US)
  Receive Date: 20131001
  Receipt Date: 20131001
  Transmission Date: 20140711
  Serious: Yes (Hospitalization, Other)
  Sender: FDA-Public Use
  Company Number: US-AMGEN-USASP2013067600

PATIENT
  Age: 32 Year
  Sex: Female

DRUGS (1)
  1. ENBREL [Suspect]
     Indication: RHEUMATOID ARTHRITIS
     Dosage: 50 MG, QWK
     Route: 065
     Dates: start: 20121101

REACTIONS (5)
  - Foetal death [Recovered/Resolved]
  - Placental disorder [Recovered/Resolved]
  - Complication of pregnancy [Recovered/Resolved]
  - Prolonged labour [Recovered/Resolved]
  - Pain [Recovered/Resolved]
